FAERS Safety Report 10219090 (Version 1)
Quarter: 2014Q2

REPORT INFORMATION
  Report Type: Spontaneous
  Country: US (occurrence: US)
  Receive Date: 20140605
  Receipt Date: 20140605
  Transmission Date: 20141212
  Serious: Yes (Other)
  Sender: FDA-Public Use
  Company Number: US-ABBVIE-14P-163-1241851-00

PATIENT
  Age: 64 Year
  Sex: Female

DRUGS (2)
  1. ANDROGEL [Suspect]
     Indication: BLOOD TESTOSTERONE DECREASED
     Dosage: SPOUSE BEGAN 10 MONTHS AGO FOR LOW TESTOSTERONE
     Route: 062
  2. ESTROGEN NOS [Concomitant]
     Indication: PRODUCT USED FOR UNKNOWN INDICATION

REACTIONS (3)
  - Benign neoplasm of bladder [Recovered/Resolved]
  - Accidental exposure to product [Not Recovered/Not Resolved]
  - Blood testosterone increased [Not Recovered/Not Resolved]
